FAERS Safety Report 6494709-6 (Version None)
Quarter: 2009Q4

REPORT INFORMATION
  Report Type: 
  Country: None (occurrence: None)
  Receive Date: 20091214
  Receipt Date: 20090313
  Transmission Date: 20100525
  Serious: No
  Sender: FDA-Public Use
  Company Number: US-BRISTOL-MYERS SQUIBB COMPANY-14548655

PATIENT
  Age: 82 Year
  Sex: Male

DRUGS (1)
  1. ABILIFY [Suspect]
     Indication: HALLUCINATION
     Dosage: INSTEAD OF 2 MILLIGRAM.

REACTIONS (1)
  - ACCIDENTAL OVERDOSE [None]
